FAERS Safety Report 5281891-1 (Version None)
Quarter: 2007Q1

REPORT INFORMATION
  Report Type: 
  Country: None (occurrence: None)
  Receive Date: 20070326
  Receipt Date: 20070308
  Transmission Date: 20070707
  Serious: Yes (Hospitalization)
  Sender: FDA-Public Use
  Company Number: 8021519

PATIENT
  Age: 72 Year
  Sex: Female
  Weight: 73.3 kg

DRUGS (8)
  1. KEPPRA [Suspect]
     Indication: EPILEPSY
     Dosage: 500 MG 2/D PO
     Route: 048
     Dates: start: 20061026, end: 20061108
  2. KEPPRA [Suspect]
     Indication: EPILEPSY
     Dosage: 1000 MG 2/D PO
     Route: 048
     Dates: start: 20061108, end: 20070202
  3. DEPAKENE [Concomitant]
  4. TEMESTA [Concomitant]
  5. BI PREDONIUM [Concomitant]
  6. IPP [Concomitant]
  7. ZYRTEC [Concomitant]
  8. SEROPRAM/00582602 [Concomitant]

REACTIONS (2)
  - JOINT SPRAIN [None]
  - PANCYTOPENIA [None]
